FAERS Safety Report 13967726 (Version 2)
Quarter: 2017Q3

REPORT INFORMATION
  Report Type: Spontaneous
  Country: DE (occurrence: IT)
  Receive Date: 20170914
  Receipt Date: 20170922
  Transmission Date: 20171128
  Serious: Yes (Life-Threatening)
  Sender: FDA-Public Use
  Company Number: DE-MYLANLABS-2017M1057116

PATIENT
  Age: 48 Year
  Sex: Male
  Weight: 75 kg

DRUGS (3)
  1. FASTJEKT [Suspect]
     Active Substance: EPINEPHRINE
     Indication: ALLERGY TO ARTHROPOD STING
  2. FASTJEKT [Suspect]
     Active Substance: EPINEPHRINE
     Indication: ANAPHYLACTIC SHOCK
     Dosage: 0.30 MG, ONCE
     Route: 030
     Dates: start: 20170812, end: 20170812
  3. CELESTAMINE [Concomitant]
     Active Substance: BETAMETHASONE\DEXCHLORPHENIRAMINE MALEATE
     Indication: ALLERGY TO ARTHROPOD STING
     Dosage: 30 ML, ONCE
     Route: 048
     Dates: start: 20170812, end: 20170812

REACTIONS (2)
  - Device malfunction [Recovered/Resolved]
  - No adverse event [Unknown]

NARRATIVE: CASE EVENT DATE: 20170812
